FAERS Safety Report 5396043-4 (Version None)
Quarter: 2007Q3

REPORT INFORMATION
  Report Type: 
  Country: None (occurrence: None)
  Receive Date: 20070724
  Receipt Date: 20070713
  Transmission Date: 20080115
  Serious: Yes (Other)
  Sender: FDA-Public Use
  Company Number: MX-PFIZER INC-2007059211

PATIENT
  Sex: Female
  Weight: 61 kg

DRUGS (5)
  1. EPAMIN INJECTION [Suspect]
     Indication: CONVULSION
     Route: 042
     Dates: start: 20060204, end: 20060205
  2. CIPROFLOXACIN [Concomitant]
     Route: 048
     Dates: start: 20060201, end: 20060201
  3. OMEPRAZOLE [Concomitant]
     Route: 048
     Dates: start: 20060201, end: 20060201
  4. VALPROIC ACID [Concomitant]
     Route: 048
     Dates: start: 20060601, end: 20060701
  5. TRILEPTAL [Concomitant]
     Route: 048
     Dates: start: 20070101, end: 20070701

REACTIONS (1)
  - HODGKIN'S DISEASE [None]
